FAERS Safety Report 6832136-X (Version None)
Quarter: 2010Q3

REPORT INFORMATION
  Report Type: 
  Country: None (occurrence: None)
  Receive Date: 20100707
  Receipt Date: 20100623
  Transmission Date: 20110219
  Serious: Yes (Hospitalization)
  Sender: FDA-Public Use
  Company Number: CV20100299

PATIENT
  Age: 34 Year
  Sex: Female

DRUGS (14)
  1. PROPOFOL [Suspect]
     Dosage: INTRAVENOUS (NOT OTHERWISE SPECIFIED)
     Route: 042
  2. SUFENTA PRESERVATIVE FREE [Concomitant]
  3. NEURONTIN [Concomitant]
  4. NORMACOL LAVEMENT (BACTRIM) [Concomitant]
  5. DEXAMETASONE [Concomitant]
  6. EPHEDRINE [Concomitant]
  7. BETADINE DERMIQUE (POVIDONE-IODINE) [Concomitant]
  8. NAROPEINE (ROPIVACAINE HYDROCHLORIDE) [Concomitant]
  9. DROPERIDOL [Concomitant]
  10. LOVENOX [Concomitant]
  11. KETAMINE [Concomitant]
  12. AUGMENTIN '125' [Concomitant]
  13. SEVOFLURANE [Concomitant]
  14. KALINOX (ENTONOX) [Concomitant]

REACTIONS (3)
  - LYMPHOPENIA [None]
  - POST PROCEDURAL COMPLICATION [None]
  - RENAL FAILURE ACUTE [None]
